FAERS Safety Report 11115151 (Version 1)
Quarter: 2015Q2

REPORT INFORMATION
  Report Type: Spontaneous
  Country: US (occurrence: None)
  Receive Date: 20150514
  Receipt Date: 20150514
  Transmission Date: 20150821
  Serious: Yes (Life-Threatening)
  Sender: FDA-Public Use
  Company Number: None

PATIENT
  Age: 53 Year
  Sex: Female
  Weight: 56.7 kg

DRUGS (5)
  1. VITAMIN D [Concomitant]
     Active Substance: CHOLECALCIFEROL
  2. BOTOX [Suspect]
     Active Substance: ONABOTULINUMTOXINA
     Indication: PAIN IN EXTREMITY
     Dosage: INTO THE MUSCLE
     Route: 030
     Dates: start: 20141215, end: 20150512
  3. BOTOX [Suspect]
     Active Substance: ONABOTULINUMTOXINA
     Indication: BACK PAIN
     Dosage: INTO THE MUSCLE
     Route: 030
     Dates: start: 20141215, end: 20150512
  4. INHALERS [Concomitant]
     Active Substance: UNSPECIFIED INGREDIENT
  5. HEART PILL [Concomitant]

REACTIONS (21)
  - Heart rate irregular [None]
  - Activities of daily living impaired [None]
  - Dyspepsia [None]
  - Skin odour abnormal [None]
  - Urinary tract infection [None]
  - Dyspnoea [None]
  - Burning sensation [None]
  - Feeding disorder [None]
  - Dysstasia [None]
  - Drug hypersensitivity [None]
  - Hypertension [None]
  - Dry skin [None]
  - Chills [None]
  - Visual acuity reduced [None]
  - Hyperhidrosis [None]
  - Urticaria [None]
  - Pruritus [None]
  - Palpitations [None]
  - Rash [None]
  - Oesophageal food impaction [None]
  - Fatigue [None]

NARRATIVE: CASE EVENT DATE: 20141215
